FAERS Safety Report 4322967-2 (Version None)
Quarter: 2004Q1

REPORT INFORMATION
  Report Type: 
  Country: None (occurrence: None)
  Receive Date: 20040325
  Receipt Date: 20040301
  Transmission Date: 20041129
  Serious: Yes (Hospitalization)
  Sender: FDA-Public Use
  Company Number: PHNU2004DE01092

PATIENT
  Age: 51 Year
  Sex: Male
  Weight: 80 kg

DRUGS (9)
  1. SANDIMMUNE [Suspect]
     Indication: LIVER TRANSPLANT
     Dosage: 225MG/DAY
     Route: 048
     Dates: start: 20040125, end: 20040223
  2. SANDIMMUNE [Suspect]
     Dosage: 250MG/DAY
     Route: 048
     Dates: start: 20040228
  3. NEORAL [Suspect]
     Indication: LIVER TRANSPLANT
     Dosage: 225MG/DAY
     Route: 048
     Dates: start: 20040224, end: 20040227
  4. MAGNETRANS FORTE [Concomitant]
     Dates: start: 20040201
  5. ZEFFIX [Concomitant]
     Dates: start: 20040201
  6. URSO FALK [Concomitant]
     Dates: start: 20040201
  7. PANTOZOL [Concomitant]
  8. CLEXANE [Concomitant]
  9. HEPATECT [Concomitant]

REACTIONS (5)
  - DIARRHOEA [None]
  - DRUG LEVEL DECREASED [None]
  - LIVER DISORDER [None]
  - MEDICATION ERROR [None]
  - NAUSEA [None]
